FAERS Safety Report 7741058-1 (Version None)
Quarter: 2011Q3

REPORT INFORMATION
  Report Type: 
  Country: None (occurrence: None)
  Receive Date: 20110909
  Receipt Date: 20110906
  Transmission Date: 20111222
  Serious: Yes (Death)
  Sender: FDA-Public Use
  Company Number: VE-PFIZER INC-2011203032

PATIENT
  Age: 66 Year
  Sex: Male

DRUGS (3)
  1. OMEPRAZOLE [Concomitant]
     Indication: PROPHYLAXIS
     Dosage: UNK
     Route: 048
     Dates: start: 20110201, end: 20110301
  2. LIPITOR [Suspect]
     Indication: INFARCTION
     Dosage: 40 MG, 1X/DAY
     Route: 048
     Dates: start: 20110201
  3. ACETYLSALICYLIC ACID [Concomitant]
     Indication: CARDIAC DISORDER
     Dosage: 100 MG, UNK
     Route: 048
     Dates: start: 20110201, end: 20110301

REACTIONS (1)
  - INFARCTION [None]
